FAERS Safety Report 5086822-5 (Version None)
Quarter: 2006Q3

REPORT INFORMATION
  Report Type: 
  Country: None (occurrence: None)
  Receive Date: 20060823
  Receipt Date: 20060818
  Transmission Date: 20061208
  Serious: Yes (Other)
  Sender: FDA-Public Use
  Company Number: US-SANOFI-SYNTHELABO-A03200605252

PATIENT
  Sex: Male

DRUGS (5)
  1. PROTONIX [Concomitant]
     Route: 065
  2. TOPROL-XL [Concomitant]
     Route: 048
  3. LIPITOR [Concomitant]
     Route: 048
  4. ASPIRIN [Concomitant]
     Route: 048
  5. PLAVIX [Suspect]
     Indication: STENT PLACEMENT
     Route: 048
     Dates: start: 20050101, end: 20060816

REACTIONS (2)
  - RETINAL DETACHMENT [None]
  - VISUAL DISTURBANCE [None]
